FAERS Safety Report 9366024 (Version 1)
Quarter: 2013Q2

REPORT INFORMATION
  Report Type: Spontaneous
  Country: US (occurrence: US)
  Receive Date: 20130625
  Receipt Date: 20130625
  Transmission Date: 20140414
  Serious: Yes (Hospitalization)
  Sender: FDA-Public Use
  Company Number: US-VERTEX PHARMACEUTICALS INC-2013-007273

PATIENT
  Age: 48 Year
  Sex: Male

DRUGS (11)
  1. INCIVEK [Suspect]
     Indication: HEPATITIS C
     Dosage: 2 DF, TID
     Route: 048
     Dates: start: 201303, end: 201305
  2. RIBAVIRIN [Suspect]
     Indication: HEPATITIS C
     Dosage: 3 DF, BID
     Dates: start: 201303
  3. RIBAVIRIN [Suspect]
     Dosage: 1 TAB AM, 2 TABS PM
     Dates: start: 20130501
  4. PEGASYS [Suspect]
     Indication: HEPATITIS C
     Dosage: 180 ?G, QW
     Dates: start: 201303
  5. AMITRIPTYLINE [Concomitant]
  6. CYCLOBENZAPRINE [Concomitant]
  7. ZOLOFT [Concomitant]
  8. GABAPENTIN [Concomitant]
  9. LASIX [Concomitant]
  10. LISINOPRIL [Concomitant]
  11. HYDROCODONE [Concomitant]

REACTIONS (4)
  - Blood count abnormal [Recovered/Resolved]
  - Blood pressure increased [Recovered/Resolved]
  - Anxiety [Unknown]
  - Nausea [Not Recovered/Not Resolved]
